FAERS Safety Report 8803090 (Version 1)
Quarter: 2012Q4

REPORT INFORMATION
  Report Type: 
  Country: US (occurrence: US)
  Receive Date: 20120924
  Receipt Date: 20120924
  Transmission Date: 20130627
  Serious: No
  Sender: FDA-Public Use
  Company Number: US-009507513-1208USA008240

PATIENT
  Age: 50 Year
  Sex: Female

DRUGS (3)
  1. PROVENTIL [Suspect]
     Indication: BRONCHITIS
     Dosage: 2 puffs, q6h
     Route: 045
     Dates: start: 20120811
  2. ANTIMICROBIAL (UNSPECIFIED) [Concomitant]
  3. MUCINEX [Concomitant]
     Indication: COUGH

REACTIONS (2)
  - Product quality issue [Not Recovered/Not Resolved]
  - Chest discomfort [Not Recovered/Not Resolved]
